FAERS Safety Report 5656038-X (Version None)
Quarter: 2008Q1

REPORT INFORMATION
  Report Type: 
  Country: None (occurrence: None)
  Receive Date: 20080307
  Receipt Date: 20080228
  Transmission Date: 20080703
  Serious: Yes (Hospitalization, Other)
  Sender: FDA-Public Use
  Company Number: US-PFIZER INC-2008019141

PATIENT
  Sex: Female
  Weight: 59 kg

DRUGS (14)
  1. LIPITOR [Suspect]
     Indication: BLOOD CHOLESTEROL INCREASED
  2. GLYBURIDE [Concomitant]
  3. ATENOLOL [Concomitant]
     Dosage: DAILY DOSE:75MG-FREQ:DAILY
  4. PREVACID [Concomitant]
     Dosage: DAILY DOSE:30MG-FREQ:DAILY
  5. PLAVIX [Concomitant]
     Dosage: DAILY DOSE:75MG-FREQ:DAILY
  6. ASPIRIN [Concomitant]
     Dosage: TEXT:81 MG-FREQ:EVERY OTHER DAY
  7. DIAZEPAM [Concomitant]
  8. PROZAC [Concomitant]
     Dosage: DAILY DOSE:20MG-FREQ:DAILY
  9. ADVAIR DISKUS 100/50 [Concomitant]
     Dosage: TEXT:250/50 USING 2 PUFFS-FREQ:DAILY
     Route: 055
  10. SPIRIVA [Concomitant]
     Route: 055
  11. HYDROCODONE BITARTRATE + ACETAMINOPHEN [Concomitant]
     Dosage: TEXT:5/500-FREQ:AS NEEDED
  12. BUTALBITAL ACETAMINOPHEN AND CAFFEINE [Concomitant]
     Dosage: FREQ:EVERY 6 HOURS AS NEEDED
  13. CLARINEX [Concomitant]
     Dosage: DAILY DOSE:10MG-FREQ:DAILY
  14. HYDROCHLOROTHIAZIDE [Concomitant]
     Dosage: DAILY DOSE:25MG-FREQ:DAILY

REACTIONS (9)
  - ASTHMA [None]
  - CHEST DISCOMFORT [None]
  - DIABETES MELLITUS [None]
  - DYSPNOEA [None]
  - EMPHYSEMA [None]
  - HYPERTENSION [None]
  - MYOCARDIAL INFARCTION [None]
  - PAIN IN EXTREMITY [None]
  - PNEUMONIA VIRAL [None]
